FAERS Safety Report 18402581 (Version 7)
Quarter: 2022Q2

REPORT INFORMATION
  Report Type: Spontaneous
  Country: SI (occurrence: SI)
  Receive Date: 20201020
  Receipt Date: 20220623
  Transmission Date: 20220721
  Serious: Yes (Hospitalization, Other)
  Sender: FDA-Public Use
  Company Number: SI-002147023-NVSC2020SI262657

PATIENT
  Age: 83 Year
  Sex: Male

DRUGS (20)
  1. PANTOPRAZOLE [Suspect]
     Active Substance: PANTOPRAZOLE
     Dosage: 20 MILLIGRAM
     Route: 065
  2. VANCOMYCIN HYDROCHLORIDE [Suspect]
     Active Substance: VANCOMYCIN HYDROCHLORIDE
     Dosage: 1 G
     Route: 042
  3. FERRIC HYDROXIDE [Suspect]
     Active Substance: FERRIC HYDROXIDE
     Dosage: 4 DF, 3X/DAY (3 X 4 TBL WITH FOOD)
  4. FERRIC HYDROXIDE [Suspect]
     Active Substance: FERRIC HYDROXIDE
     Dosage: UNK, 1X/DAY
     Route: 065
  5. LACIDIPINE [Suspect]
     Active Substance: LACIDIPINE
     Dosage: 4 MG
     Route: 065
  6. ACETAMINOPHEN [Suspect]
     Active Substance: ACETAMINOPHEN
     Dosage: 500 MG, AS NEEDED
     Route: 065
  7. CHOLECALCIFEROL [Suspect]
     Active Substance: CHOLECALCIFEROL
     Dosage: 1 DF, MONTHLY (QMO)
     Route: 065
  8. PANTOPRAZOLE SODIUM [Suspect]
     Active Substance: PANTOPRAZOLE SODIUM
     Dosage: 20 MG
     Route: 065
  9. WARFARIN SODIUM [Suspect]
     Active Substance: WARFARIN SODIUM
     Dosage: UNK (ACCORDING TO THE SCHEME)
  10. ZOLPIDEM TARTRATE [Suspect]
     Active Substance: ZOLPIDEM TARTRATE
     Dosage: 5 MG (IN THE EVENING), QD
     Route: 065
  11. ALFACALCIDOL [Suspect]
     Active Substance: ALFACALCIDOL
     Dosage: 0.5 UG
     Route: 065
  12. ALFACALCIDOL [Suspect]
     Active Substance: ALFACALCIDOL
     Dosage: 2.5 UG
     Route: 065
  13. ALFACALCIDOL [Suspect]
     Active Substance: ALFACALCIDOL
     Dosage: 5 UG
  14. FOLIC ACID [Suspect]
     Active Substance: FOLIC ACID
     Dosage: 1 DF, 2X/DAY; (2 X 1 TBL)
     Route: 065
  15. FOLIC ACID [Suspect]
     Active Substance: FOLIC ACID
     Dosage: UNK UNK, Q12H
     Route: 065
  16. DARBEPOETIN ALFA [Suspect]
     Active Substance: DARBEPOETIN ALFA
     Dosage: UNK QOW (100 + 150 MCG EVERY 14 DAY)
  17. DARBEPOETIN ALFA [Suspect]
     Active Substance: DARBEPOETIN ALFA
     Dosage: UNK, 2X/WEEK
     Route: 065
  18. CEFTRIAXONE [Suspect]
     Active Substance: CEFTRIAXONE
     Dosage: 2 G (FOR 24 HOURS)
     Route: 042
  19. BISOPROLOL [Suspect]
     Active Substance: BISOPROLOL
     Dosage: 2.5 MG (IN THE MORNING), QD
     Route: 065
  20. DIGOXIN [Suspect]
     Active Substance: DIGOXIN
     Dosage: UNK
     Route: 065

REACTIONS (23)
  - Tachycardia [Unknown]
  - Device related sepsis [Unknown]
  - Splenomegaly [Unknown]
  - Oxygen saturation decreased [Unknown]
  - Hypotension [Recovered/Resolved]
  - Heart rate increased [Recovered/Resolved]
  - Platelet count decreased [Unknown]
  - Procalcitonin abnormal [Unknown]
  - Encephalomalacia [Unknown]
  - Haematocrit decreased [Unknown]
  - International normalised ratio increased [Unknown]
  - C-reactive protein increased [Unknown]
  - Malaise [Unknown]
  - Asthenia [Unknown]
  - Cough [Unknown]
  - Laboratory test abnormal [Unknown]
  - Monocyte count increased [Unknown]
  - Lymphocyte count increased [Unknown]
  - White blood cell count increased [Unknown]
  - PCO2 decreased [Unknown]
  - PO2 decreased [Unknown]
  - Dysarthria [Unknown]
  - Dysphagia [Unknown]

NARRATIVE: CASE EVENT DATE: 20200907
